FAERS Safety Report 4738112-5 (Version None)
Quarter: 2005Q3

REPORT INFORMATION
  Report Type: 
  Country: None (occurrence: None)
  Receive Date: 20050805
  Receipt Date: 20050719
  Transmission Date: 20060218
  Serious: Yes (Hospitalization)
  Sender: FDA-Public Use
  Company Number: 11902

PATIENT
  Age: 6 Year
  Sex: Male

DRUGS (5)
  1. METHOTREXATE [Suspect]
     Indication: RHEUMATOID ARTHRITIS
     Dosage: 22 MG WEEKLY SC
     Route: 058
     Dates: start: 19980818, end: 20010610
  2. METHOTREXATE [Suspect]
     Indication: RHEUMATOID ARTHRITIS
     Dosage: 22 MG WEEKLY SC
     Route: 058
     Dates: start: 20041101
  3. PREDNISOLONE [Concomitant]
  4. IMMUNOGLOBULINS [Concomitant]
  5. FOLIC ACID [Concomitant]

REACTIONS (22)
  - ABDOMINAL PAIN [None]
  - ABSCESS [None]
  - ANAEMIA [None]
  - ARTHRALGIA [None]
  - CONDITION AGGRAVATED [None]
  - DISEASE RECURRENCE [None]
  - DIZZINESS [None]
  - DYSPEPSIA [None]
  - FEELING HOT [None]
  - INJECTION SITE ERYTHEMA [None]
  - INJECTION SITE HAEMORRHAGE [None]
  - INJECTION SITE PRURITUS [None]
  - INJECTION SITE RASH [None]
  - JUVENILE ARTHRITIS [None]
  - MUSCLE SWELLING [None]
  - MYALGIA [None]
  - NAUSEA [None]
  - PAIN IN EXTREMITY [None]
  - PYREXIA [None]
  - RASH [None]
  - SWELLING [None]
  - VOMITING [None]
